FAERS Safety Report 6369885-6 (Version None)
Quarter: 2009Q3

REPORT INFORMATION
  Report Type: 
  Country: None (occurrence: None)
  Receive Date: 20090923
  Receipt Date: 20070601
  Transmission Date: 20100115
  Serious: Yes (Hospitalization, Disabling)
  Sender: FDA-Public Use
  Company Number: US-ASTRAZENECA-2006UW11480

PATIENT
  Age: 31 Year
  Sex: Male
  Weight: 82.6 kg

DRUGS (6)
  1. SEROQUEL [Suspect]
     Indication: MENTAL DISORDER
     Route: 048
     Dates: start: 20060712
  2. ZYPREXA [Suspect]
     Indication: PSYCHOTIC DISORDER
     Dosage: 10 - 20 MG QHS
     Dates: start: 20040327
  3. ZYPREXA [Suspect]
     Dosage: 10  TO 20 MG
     Dates: start: 20040101, end: 20050101
  4. HALDOL [Concomitant]
     Indication: PSYCHOTIC DISORDER
     Dosage: 5 MG MORNING AND 15 MG AT BEDTIME
     Dates: start: 20050413
  5. COGENTIN [Concomitant]
     Dates: start: 20060712
  6. RISPERDAL [Concomitant]
     Route: 048
     Dates: start: 20050413

REACTIONS (2)
  - DIABETES MELLITUS [None]
  - DIABETIC COMA [None]
